FAERS Safety Report 4506512-4 (Version None)
Quarter: 2004Q4

REPORT INFORMATION
  Report Type: 
  Country: None (occurrence: None)
  Receive Date: 20041122
  Receipt Date: 20041102
  Transmission Date: 20050328
  Serious: Yes (Hospitalization)
  Sender: FDA-Public Use
  Company Number: FR-ABBOTT-04P-056-0279719-00

PATIENT
  Sex: Female
  Weight: 46 kg

DRUGS (4)
  1. HUMIRA [Suspect]
     Indication: RHEUMATOID ARTHRITIS
     Route: 058
     Dates: start: 20040219, end: 20040826
  2. HUMIRA [Suspect]
     Route: 058
     Dates: start: 20040930
  3. CLAVULIN [Concomitant]
     Indication: EAR INFECTION
     Dates: start: 20040817, end: 20040822
  4. COMMERCIAL HUMIRA [Concomitant]
     Indication: RHEUMATOID ARTHRITIS
     Route: 058
     Dates: start: 20031104

REACTIONS (5)
  - CHOLELITHIASIS [None]
  - EAR INFECTION [None]
  - FOOD POISONING [None]
  - GASTROENTERITIS [None]
  - SALMONELLOSIS [None]
